FAERS Safety Report 6407605-7 (Version None)
Quarter: 2009Q4

REPORT INFORMATION
  Report Type: 
  Country: None (occurrence: None)
  Receive Date: 20091020
  Receipt Date: 20091006
  Transmission Date: 20100525
  Serious: Yes (Other)
  Sender: FDA-Public Use
  Company Number: FR-MYLANLABS-2009S1017258

PATIENT
  Age: 26 Year
  Sex: Male

DRUGS (1)
  1. AZATHIOPRINE [Suspect]
     Indication: CROHN'S DISEASE
     Route: 065
     Dates: start: 19950701, end: 19970601

REACTIONS (8)
  - ASCITES [None]
  - CROHN'S DISEASE [None]
  - ENTEROVESICAL FISTULA [None]
  - HEPATIC FIBROSIS [None]
  - HEPATOSPLENOMEGALY [None]
  - HYPOALBUMINAEMIA [None]
  - PERIPORTAL SINUS DILATATION [None]
  - THROMBOCYTOPENIA [None]
